FAERS Safety Report 23053284 (Version 1)
Quarter: 2023Q4

REPORT INFORMATION
  Report Type: Spontaneous
  Country: US (occurrence: US)
  Receive Date: 20231011
  Receipt Date: 20231011
  Transmission Date: 20240109
  Serious: Yes (Other)
  Sender: FDA-Public Use
  Company Number: US-AVET LIFESCIENCES LTD-2023-AVET-000294

PATIENT
  Age: 66 Year
  Sex: Female

DRUGS (5)
  1. AMANTADINE HYDROCHLORIDE [Suspect]
     Active Substance: AMANTADINE HYDROCHLORIDE
     Indication: Parkinson^s disease
     Dosage: 100 MILLIGRAM, BID
  2. AMANTADINE HYDROCHLORIDE [Suspect]
     Active Substance: AMANTADINE HYDROCHLORIDE
     Dosage: DOSE INCREASE TO 300 MILLIGRAM/DAY
  3. LEVODOPA [Concomitant]
     Active Substance: LEVODOPA
     Dosage: 1000 MILLIGRAM/ DAY
  4. DIPHENHYDRAMINE [Concomitant]
     Active Substance: DIPHENHYDRAMINE
     Dosage: 25 MILLIGRAM/ DAY
  5. NORFLOXACIN [Concomitant]
     Active Substance: NORFLOXACIN
     Indication: Urinary tract infection
     Dosage: UNKNOWN

REACTIONS (2)
  - Myoclonus [Recovered/Resolved]
  - Dysarthria [Recovered/Resolved]
